FAERS Safety Report 9784987 (Version 2)
Quarter: 2014Q1

REPORT INFORMATION
  Report Type: Spontaneous
  Country: US (occurrence: US)
  Receive Date: 20131227
  Receipt Date: 20140212
  Transmission Date: 20141002
  Serious: No
  Sender: FDA-Public Use
  Company Number: US-B.I. PHARMACEUTICALS,INC./RIDGEFIELD-2013-BI-41630BP

PATIENT
  Age: 77 Year
  Sex: Female
  Weight: 95.45 kg

DRUGS (2)
  1. SPIRIVA [Suspect]
     Indication: CHRONIC OBSTRUCTIVE PULMONARY DISEASE
     Dosage: 18 MCG
     Route: 055
     Dates: start: 2012, end: 20131212
  2. PROAIR [Concomitant]
     Indication: CHRONIC OBSTRUCTIVE PULMONARY DISEASE
     Dosage: FORMULATION: INHALATION AEROSOL; STRENGTH: 1 INHALATION; DAILY DOSE: 2 INHALATIONS
     Route: 055

REACTIONS (1)
  - Oropharyngeal pain [Recovered/Resolved]
